FAERS Safety Report 4765064-4 (Version None)
Quarter: 2005Q3

REPORT INFORMATION
  Report Type: 
  Country: None (occurrence: None)
  Receive Date: 20050907
  Receipt Date: 20050829
  Transmission Date: 20060218
  Serious: Yes (Death)
  Sender: FDA-Public Use
  Company Number: HQWYE216031AUG05

PATIENT
  Age: 21 Year
  Sex: Male

DRUGS (1)
  1. EFFEXOR XR [Suspect]
     Indication: DEPRESSION

REACTIONS (20)
  - AGGRESSION [None]
  - AGITATION [None]
  - ANOREXIA [None]
  - COMPLETED SUICIDE [None]
  - CONDITION AGGRAVATED [None]
  - CRYING [None]
  - DEPRESSION [None]
  - GUN SHOT WOUND [None]
  - HOMICIDAL IDEATION [None]
  - HOSTILITY [None]
  - INJURY ASPHYXIATION [None]
  - INSOMNIA [None]
  - LOGORRHOEA [None]
  - NERVOUSNESS [None]
  - PHARMACEUTICAL PRODUCT COMPLAINT [None]
  - PRESSURE OF SPEECH [None]
  - PSYCHIATRIC SYMPTOM [None]
  - SELF-INJURIOUS IDEATION [None]
  - SUICIDAL IDEATION [None]
  - WEIGHT DECREASED [None]
